FAERS Safety Report 6857716-7 (Version None)
Quarter: 2010Q3

REPORT INFORMATION
  Report Type: 
  Country: None (occurrence: None)
  Receive Date: 20100719
  Receipt Date: 20080130
  Transmission Date: 20110219
  Serious: No
  Sender: FDA-Public Use
  Company Number: US-PFIZER INC-2008010561

PATIENT
  Sex: Female
  Weight: 61.8 kg

DRUGS (7)
  1. CHANTIX [Suspect]
     Indication: SMOKING CESSATION THERAPY
     Dates: start: 20080122
  2. TRAZODONE HYDROCHLORIDE [Concomitant]
     Indication: SLEEP DISORDER
  3. ZYPREXA [Concomitant]
     Indication: DEPRESSION
  4. NORVASC [Concomitant]
     Indication: HYPERTENSION
  5. MAGNESIUM OXIDE [Concomitant]
     Indication: HYPERTENSION
  6. MORPHINE [Concomitant]
     Indication: PAIN
  7. DIAZEPAM [Concomitant]
     Indication: ANXIETY

REACTIONS (6)
  - DIZZINESS [None]
  - HEADACHE [None]
  - HYPOTENSION [None]
  - MUSCULAR WEAKNESS [None]
  - SOMNOLENCE [None]
  - VOMITING [None]
